FAERS Safety Report 12388740 (Version 1)
Quarter: 2016Q2

REPORT INFORMATION
  Report Type: Spontaneous
  Country: US (occurrence: None)
  Receive Date: 20160519
  Receipt Date: 20160519
  Transmission Date: 20160815
  Serious: Yes (Hospitalization)
  Sender: FDA-Public Use
  Company Number: None

PATIENT
  Age: 67 Year
  Sex: Male
  Weight: 60.5 kg

DRUGS (2)
  1. INSULIN [Suspect]
     Active Substance: INSULIN NOS
     Indication: DIABETES MELLITUS
     Dosage: 8 UNITS AT BEDTIME SQ
     Route: 058
     Dates: start: 20160405, end: 20160410
  2. INSULIN [Suspect]
     Active Substance: INSULIN NOS
     Indication: DIABETES MELLITUS
     Dosage: UNITS BID SQ
     Route: 058
     Dates: start: 20160305, end: 20160310

REACTIONS (5)
  - Brain contusion [None]
  - Haemorrhage intracranial [None]
  - Oxygen saturation decreased [None]
  - Hypoglycaemia [None]
  - Somnolence [None]

NARRATIVE: CASE EVENT DATE: 20160410
